FAERS Safety Report 5648174-9 (Version None)
Quarter: 2008Q1

REPORT INFORMATION
  Report Type: 
  Country: None (occurrence: None)
  Receive Date: 20080229
  Receipt Date: 20080226
  Transmission Date: 20080703
  Serious: Yes (Other)
  Sender: FDA-Public Use
  Company Number: 07122358

PATIENT
  Age: 86 Year
  Sex: Female

DRUGS (7)
  1. WARFARIN SODIUM [Suspect]
     Dosage: 2MG, QD, ORAL
     Route: 048
     Dates: start: 20071212
  2. WARFARIN SODIUM [Suspect]
     Dosage: 4MG,QD,ORAL
     Route: 048
     Dates: start: 20071205, end: 20071211
  3. CIPRO [Concomitant]
  4. LANOXIN [Concomitant]
  5. DITROPAN [Concomitant]
  6. ALTACE [Concomitant]
  7. ATIVAN [Concomitant]

REACTIONS (1)
  - INTERNATIONAL NORMALISED RATIO INCREASED [None]
